FAERS Safety Report 14718789 (Version 17)
Quarter: 2019Q1

REPORT INFORMATION
  Report Type: Report from Study
  Country: CA (occurrence: CA)
  Receive Date: 20180405
  Receipt Date: 20190329
  Transmission Date: 20190417
  Serious: Yes (Other)
  Sender: FDA-Public Use
  Company Number: CA-ROCHE-2035125

PATIENT
  Age: 46 Year
  Sex: Female
  Weight: 64 kg

DRUGS (9)
  1. AVASTIN [Suspect]
     Active Substance: BEVACIZUMAB
     Dosage: 100 MG AND 400 MG?FORM STRENGTH: 25 MG/ML
     Route: 042
     Dates: start: 20171206
  2. TEMODAL [Suspect]
     Active Substance: TEMOZOLOMIDE
     Indication: BRAIN NEOPLASM MALIGNANT
     Route: 065
     Dates: start: 20171030, end: 20180211
  3. TEMODAL [Suspect]
     Active Substance: TEMOZOLOMIDE
     Route: 065
     Dates: start: 20171101
  4. AVASTIN [Suspect]
     Active Substance: BEVACIZUMAB
     Route: 042
     Dates: start: 20120227
  5. AVASTIN [Suspect]
     Active Substance: BEVACIZUMAB
     Indication: BRAIN NEOPLASM MALIGNANT
     Route: 042
     Dates: start: 20100727
  6. CARBOPLATIN. [Suspect]
     Active Substance: CARBOPLATIN
     Indication: PRODUCT USED FOR UNKNOWN INDICATION
     Dosage: THERAPY ON HOLD
     Route: 065
     Dates: start: 2018
  7. LOMUSTINE. [Concomitant]
     Active Substance: LOMUSTINE
     Dosage: STOP DATE: //2018
     Route: 065
     Dates: start: 201802
  8. ONDANSETRON [Concomitant]
     Active Substance: ONDANSETRON
     Indication: NAUSEA
  9. DECADRON [Concomitant]
     Active Substance: DEXAMETHASONE
     Indication: ALLERGIC TRANSFUSION REACTION
     Route: 042

REACTIONS (62)
  - Thrombocytopenia [Unknown]
  - Mean platelet volume decreased [Not Recovered/Not Resolved]
  - Fatigue [Recovered/Resolved]
  - Gait disturbance [Unknown]
  - Herpes zoster [Unknown]
  - Gamma-glutamyltransferase increased [Unknown]
  - Red blood cell count decreased [Unknown]
  - Sensory loss [Unknown]
  - Nystagmus [Unknown]
  - Raynaud^s phenomenon [Unknown]
  - Platelet disorder [Not Recovered/Not Resolved]
  - Lymphocyte count decreased [Unknown]
  - Headache [Unknown]
  - Lymphocyte percentage increased [Unknown]
  - Monocyte count increased [Unknown]
  - Malaise [Not Recovered/Not Resolved]
  - Allergic transfusion reaction [Recovered/Resolved]
  - Neutrophil count increased [Recovered/Resolved]
  - Diarrhoea [Recovered/Resolved]
  - Red cell distribution width increased [Not Recovered/Not Resolved]
  - Lymphocyte count decreased [Not Recovered/Not Resolved]
  - Blood bicarbonate increased [Unknown]
  - White blood cell count decreased [Unknown]
  - Constipation [Not Recovered/Not Resolved]
  - Dry mouth [Recovered/Resolved]
  - Red blood cell count decreased [Not Recovered/Not Resolved]
  - Neutrophil percentage decreased [Unknown]
  - Eosinophil percentage increased [Unknown]
  - Neutrophil count decreased [Unknown]
  - Blood magnesium increased [Unknown]
  - Dry mouth [Unknown]
  - Lymphocyte count decreased [Unknown]
  - Deafness unilateral [Not Recovered/Not Resolved]
  - Mean cell volume increased [Unknown]
  - Anxiety [Not Recovered/Not Resolved]
  - Drug ineffective [Unknown]
  - Dry mouth [Recovered/Resolved]
  - Mean cell haemoglobin increased [Unknown]
  - Haematocrit decreased [Not Recovered/Not Resolved]
  - Pruritus generalised [Unknown]
  - Neutrophil percentage increased [Unknown]
  - Muscular weakness [Unknown]
  - Platelet count decreased [Recovered/Resolved]
  - Neck pain [Unknown]
  - Fatigue [Recovering/Resolving]
  - Blood alkaline phosphatase increased [Unknown]
  - Depression [Unknown]
  - Musculoskeletal stiffness [Unknown]
  - Alanine aminotransferase increased [Not Recovered/Not Resolved]
  - Fatigue [Not Recovered/Not Resolved]
  - Nausea [Unknown]
  - Lymphocyte percentage decreased [Unknown]
  - Hypoaesthesia [Unknown]
  - Blood bilirubin increased [Unknown]
  - Dysphagia [Recovered/Resolved]
  - Rash [Recovered/Resolved]
  - Dyspnoea [Recovered/Resolved]
  - Blood lactate dehydrogenase increased [Unknown]
  - Decreased appetite [Not Recovered/Not Resolved]
  - Blood urea increased [Not Recovered/Not Resolved]
  - Blood creatinine increased [Not Recovered/Not Resolved]
  - Haemoglobin decreased [Not Recovered/Not Resolved]

NARRATIVE: CASE EVENT DATE: 20180102
